FAERS Safety Report 8872266 (Version 1)
Quarter: 2012Q4

REPORT INFORMATION
  Report Type: 
  Country: US (occurrence: US)
  Receive Date: 20121026
  Receipt Date: 20121026
  Transmission Date: 20130627
  Serious: No
  Sender: FDA-Public Use
  Company Number: US-AMGEN-USASP2012049262

PATIENT
  Sex: Female
  Weight: 68.03 kg

DRUGS (7)
  1. ENBREL [Suspect]
     Indication: PRODUCT USED FOR UNKNOWN INDICATION
     Dosage: 50 mg, qwk
     Route: 058
  2. RANITIDINE [Concomitant]
     Dosage: 150 mg, UNK
  3. LEVOTHYROXIN [Concomitant]
     Dosage: 125 mug, UNK
  4. TRIAMTEREEN/HYDROCHLOOTTHIAZIDE [Concomitant]
     Dosage: 25-50 MG
  5. DILTIAZEM CD [Concomitant]
     Dosage: 120 mg, UNK
  6. SULFASALAZIN [Concomitant]
     Dosage: 500 mg, UNK
  7. IBUPROFEN [Concomitant]
     Dosage: 200 mg, UNK

REACTIONS (2)
  - Visual impairment [Unknown]
  - Dry eye [Unknown]
